FAERS Safety Report 5375526-7 (Version None)
Quarter: 2007Q2

REPORT INFORMATION
  Report Type: 
  Country: None (occurrence: None)
  Receive Date: 20070629
  Receipt Date: 20070619
  Transmission Date: 20071010
  Serious: Yes (Other)
  Sender: FDA-Public Use
  Company Number: US-PFIZER INC-2007050533

PATIENT
  Sex: Male
  Weight: 98.4 kg

DRUGS (7)
  1. NEURONTIN [Suspect]
     Indication: PAIN
     Route: 048
  2. TENORMIN [Concomitant]
  3. FLEXERIL [Concomitant]
  4. POTASSIUM ACETATE [Concomitant]
  5. METHADONE HCL [Concomitant]
  6. FRUSEMIDE [Concomitant]
  7. PREVACID [Concomitant]

REACTIONS (7)
  - DRUG INEFFECTIVE [None]
  - OEDEMA PERIPHERAL [None]
  - PAIN [None]
  - SKIN TIGHTNESS [None]
  - SWELLING [None]
  - VEIN DISORDER [None]
  - WEIGHT INCREASED [None]
